FAERS Safety Report 6254635-4 (Version None)
Quarter: 2009Q3

REPORT INFORMATION
  Report Type: 
  Country: None (occurrence: None)
  Receive Date: 20090702
  Receipt Date: 20090623
  Transmission Date: 20100115
  Serious: Yes (Life-Threatening, Hospitalization)
  Sender: FDA-Public Use
  Company Number: B0573361A

PATIENT
  Sex: Male
  Weight: 2.5 kg

DRUGS (10)
  1. PAXIL [Suspect]
     Indication: PANIC DISORDER
     Dosage: 40MG PER DAY
  2. BENZALIN [Suspect]
     Indication: PANIC DISORDER
  3. LEXOTAN [Suspect]
     Indication: PANIC DISORDER
     Dosage: 5MG THREE TIMES PER DAY
  4. AMOXAN [Suspect]
     Indication: DRUG USE FOR UNKNOWN INDICATION
  5. BENZODIAZEPINE [Suspect]
     Indication: DRUG USE FOR UNKNOWN INDICATION
     Route: 065
  6. RESLIN [Concomitant]
     Indication: PANIC DISORDER
     Dosage: 50MG PER DAY
  7. SILECE [Concomitant]
     Indication: PANIC DISORDER
     Dosage: 2MG PER DAY
  8. NAUZELIN [Concomitant]
     Indication: PANIC DISORDER
     Dosage: 5MG PER DAY
  9. DEPAS [Concomitant]
     Indication: PANIC DISORDER
     Dosage: 3MG PER DAY
  10. TRYPTANOL [Concomitant]
     Indication: PANIC DISORDER
     Dosage: 15MG PER DAY

REACTIONS (6)
  - DRUG EXPOSURE DURING PREGNANCY [None]
  - DRUG WITHDRAWAL SYNDROME NEONATAL [None]
  - FEEDING DISORDER NEONATAL [None]
  - HYPOVENTILATION NEONATAL [None]
  - IRRITABILITY [None]
  - NEONATAL RESPIRATORY DEPRESSION [None]
